FAERS Safety Report 7891796-5 (Version None)
Quarter: 2011Q4

REPORT INFORMATION
  Report Type: 
  Country: None (occurrence: None)
  Receive Date: 20111103
  Receipt Date: 20110810
  Transmission Date: 20120403
  Serious: No
  Sender: FDA-Public Use
  Company Number: US-AMGEN-USASP2011040656

PATIENT
  Age: 62 Year
  Sex: Female
  Weight: 72.562 kg

DRUGS (9)
  1. ASPIRIN [Concomitant]
     Dosage: 81 MG, UNK
  2. AMBIEN [Concomitant]
     Dosage: 5 MG, UNK
  3. ENBREL [Suspect]
     Indication: PRODUCT USED FOR UNKNOWN INDICATION
     Dosage: 50 MG, 2 TIMES/WK
     Dates: start: 20110728
  4. SINGULAIR [Concomitant]
     Dosage: 10 MG, UNK
  5. DILANTIN [Concomitant]
     Dosage: 100 MG, UNK
  6. NASONEX AQUEOUS [Concomitant]
     Dosage: 50 MUG, UNK
  7. MELOXICAM [Concomitant]
     Dosage: 15 MG, UNK
  8. SIMVASTATIN [Concomitant]
     Dosage: 10 MG, UNK
  9. LISINOPRIL [Concomitant]
     Dosage: 20 MG, UNK

REACTIONS (3)
  - COUGH [None]
  - INFLUENZA [None]
  - INJECTION SITE REACTION [None]
